FAERS Safety Report 9633232 (Version 1)
Quarter: 2013Q4

REPORT INFORMATION
  Report Type: Spontaneous
  Country: US (occurrence: None)
  Receive Date: 20131018
  Receipt Date: 20131018
  Transmission Date: 20140711
  Serious: Yes (Other)
  Sender: FDA-Public Use
  Company Number: None

PATIENT
  Age: 66 Year
  Sex: Male
  Weight: 77.11 kg

DRUGS (1)
  1. BISOPROLOL FUMARATE [Suspect]
     Route: 048
     Dates: start: 20130823, end: 20130830

REACTIONS (2)
  - Feeling abnormal [None]
  - Product quality issue [None]
